FAERS Safety Report 7368761-X (Version None)
Quarter: 2011Q1

REPORT INFORMATION
  Report Type: 
  Country: None (occurrence: None)
  Receive Date: 20110314
  Receipt Date: 20101203
  Transmission Date: 20110831
  Serious: Yes (Hospitalization)
  Sender: FDA-Public Use
  Company Number: DSA_44503_2010

PATIENT
  Sex: Female
  Weight: 58.6 kg

DRUGS (18)
  1. SORTIS [Concomitant]
  2. DORMICUM /00634101/ [Concomitant]
  3. ASPIRIN [Concomitant]
  4. GLUCOPHAGE [Concomitant]
  5. POTASSIUM CHLORIDE [Concomitant]
  6. BLOPRESS [Concomitant]
  7. SODIUM CHLORIDE [Concomitant]
  8. ZOLPIDEM [Suspect]
     Indication: PRODUCT USED FOR UNKNOWN INDICATION
     Dosage: (10 MG ORAL), (10 MG QD)
     Route: 048
     Dates: start: 20101105, end: 20101105
  9. ZOLPIDEM [Suspect]
     Indication: PRODUCT USED FOR UNKNOWN INDICATION
     Dosage: (10 MG ORAL), (10 MG QD)
     Route: 048
     Dates: start: 20101114
  10. TEMESTA /00273201/ [Concomitant]
  11. NEURONTIN [Suspect]
     Indication: PRODUCT USED FOR UNKNOWN INDICATION
     Dosage: (100 MG QID ORAL)
     Route: 048
     Dates: start: 20101118
  12. AMLODIPINE [Concomitant]
  13. NEXIUM [Concomitant]
  14. DIAMICRON [Concomitant]
  15. XENAZINE [Suspect]
     Indication: DYSKINESIA
     Dosage: (37.5 MG   TID ORAL), (37.5 MG BID ORAL),(37.5 MG IN THE MORNING AND EVENING AND 50 MG AT NOON ORAL)
     Route: 048
     Dates: start: 20100906, end: 20100101
  16. XENAZINE [Suspect]
     Indication: DYSKINESIA
     Dosage: (37.5 MG   TID ORAL), (37.5 MG BID ORAL),(37.5 MG IN THE MORNING AND EVENING AND 50 MG AT NOON ORAL)
     Route: 048
     Dates: start: 20100101, end: 20100101
  17. XENAZINE [Suspect]
     Indication: DYSKINESIA
     Dosage: (37.5 MG   TID ORAL), (37.5 MG BID ORAL),(37.5 MG IN THE MORNING AND EVENING AND 50 MG AT NOON ORAL)
     Route: 048
     Dates: start: 20101101
  18. XENAZINE [Suspect]
     Indication: DYSKINESIA
     Dosage: (37.5 MG   TID ORAL), (37.5 MG BID ORAL),(37.5 MG IN THE MORNING AND EVENING AND 50 MG AT NOON ORAL)
     Route: 048
     Dates: start: 20101106, end: 20101118

REACTIONS (21)
  - OXYGEN SATURATION DECREASED [None]
  - TERMINAL INSOMNIA [None]
  - HYPONATRAEMIA [None]
  - FATIGUE [None]
  - VOMITING [None]
  - ANXIETY [None]
  - FALL [None]
  - DEPRESSION [None]
  - DECREASED ACTIVITY [None]
  - VERTIGO [None]
  - MUSCULAR WEAKNESS [None]
  - HEAD INJURY [None]
  - BLOOD GLUCOSE INCREASED [None]
  - SOMNOLENCE [None]
  - MYDRIASIS [None]
  - NAUSEA [None]
  - DRUG INTERACTION [None]
  - DECREASED APPETITE [None]
  - COMA [None]
  - INITIAL INSOMNIA [None]
  - OFF LABEL USE [None]
